FAERS Safety Report 4966659-5 (Version None)
Quarter: 2006Q2

REPORT INFORMATION
  Report Type: 
  Country: None (occurrence: None)
  Receive Date: 20060407
  Receipt Date: 20060405
  Transmission Date: 20061013
  Serious: Yes (Hospitalization, Other)
  Sender: FDA-Public Use
  Company Number: MX-ABBOTT-06P-107-0330057-00

PATIENT
  Sex: Male
  Weight: 49 kg

DRUGS (4)
  1. KALETRA [Suspect]
     Indication: ACQUIRED IMMUNODEFICIENCY SYNDROME
     Route: 048
     Dates: start: 20050805
  2. BACTRIM [Concomitant]
     Indication: ANTIBIOTIC PROPHYLAXIS
     Route: 048
     Dates: start: 20050724
  3. ITRACONAZOLE [Concomitant]
     Indication: ONYCHOMYCOSIS
     Route: 048
     Dates: start: 20060309
  4. LAMIVUDINE AND ZIDOVUDINE [Concomitant]
     Indication: ACQUIRED IMMUNODEFICIENCY SYNDROME
     Route: 048
     Dates: start: 20050805, end: 20060317

REACTIONS (4)
  - ABDOMINAL WALL ABSCESS [None]
  - LEUKOCYTOSIS [None]
  - POSTOPERATIVE WOUND INFECTION [None]
  - PYREXIA [None]
